FAERS Safety Report 22118641 (Version 1)
Quarter: 2023Q1

REPORT INFORMATION
  Report Type: Spontaneous
  Country: FR (occurrence: FR)
  Receive Date: 20230321
  Receipt Date: 20230321
  Transmission Date: 20230417
  Serious: Yes (Death, Other)
  Sender: FDA-Public Use
  Company Number: FR-ALXN-A202303339

PATIENT
  Age: 6 Month
  Sex: Female

DRUGS (2)
  1. SOLIRIS [Suspect]
     Active Substance: ECULIZUMAB
     Indication: Atypical haemolytic uraemic syndrome
     Dosage: UNK
     Route: 065
  2. PHENOXYMETHYLPENICILLINE [Concomitant]
     Indication: Antibiotic prophylaxis
     Dosage: UNK
     Route: 065

REACTIONS (9)
  - Staphylococcal sepsis [Fatal]
  - Cardiac arrest [Fatal]
  - Cardiac dysfunction [Fatal]
  - Hypovolaemia [Fatal]
  - Acute kidney injury [Unknown]
  - Immunosuppression [Unknown]
  - Thrombocytopenia [Unknown]
  - Autonomic nervous system imbalance [Unknown]
  - Laboratory test abnormal [Unknown]
